FAERS Safety Report 5068964-3 (Version None)
Quarter: 2006Q3

REPORT INFORMATION
  Report Type: 
  Country: None (occurrence: None)
  Receive Date: 20060801
  Receipt Date: 20060801
  Transmission Date: 20061208
  Serious: No
  Sender: FDA-Public Use
  Company Number: None

PATIENT
  Age: 50 Year
  Sex: Male
  Weight: 83 kg

DRUGS (1)
  1. ZOSYN [Suspect]
     Dosage: 2.25 GRAM EVERY 8 HOURS IV
     Route: 042
     Dates: start: 20060716, end: 20060717

REACTIONS (1)
  - PLATELET COUNT DECREASED [None]
